FAERS Safety Report 7220617-9 (Version None)
Quarter: 2011Q1

REPORT INFORMATION
  Report Type: 
  Country: None (occurrence: None)
  Receive Date: 20110111
  Receipt Date: 20110106
  Transmission Date: 20110831
  Serious: Yes (Other)
  Sender: FDA-Public Use
  Company Number: CA-PFIZER INC-2011004012

PATIENT
  Sex: Male

DRUGS (2)
  1. CHAMPIX [Suspect]
     Dosage: UNK
  2. ALCOHOL [Interacting]
     Dosage: UNK

REACTIONS (2)
  - PSYCHOTIC DISORDER [None]
  - ALCOHOL INTERACTION [None]
